FAERS Safety Report 5745206-4 (Version None)
Quarter: 2008Q2

REPORT INFORMATION
  Report Type: 
  Country: None (occurrence: None)
  Receive Date: 20080521
  Receipt Date: 20080519
  Transmission Date: 20081010
  Serious: Yes (Hospitalization)
  Sender: FDA-Public Use
  Company Number: A0715599B

PATIENT
  Age: 40 Year
  Sex: Female
  Weight: 77.7 kg

DRUGS (4)
  1. PAZOPANIB [Suspect]
     Dosage: 800MG PER DAY
     Route: 048
     Dates: start: 20080206
  2. LAPATINIB [Suspect]
     Dosage: 1500MG PER DAY
     Route: 048
     Dates: start: 20080206, end: 20080422
  3. OXYCONTIN [Concomitant]
     Indication: PAIN
     Dosage: 270MGD PER DAY
     Route: 048
     Dates: start: 20080313
  4. EFFEXOR [Concomitant]
     Indication: DEPRESSION
     Dosage: 75MG PER DAY
     Route: 048
     Dates: start: 20080313

REACTIONS (2)
  - DIARRHOEA [None]
  - HAEMATURIA [None]
